FAERS Safety Report 20993371 (Version 1)
Quarter: 2022Q2

REPORT INFORMATION
  Report Type: Spontaneous
  Country: US (occurrence: US)
  Receive Date: 20220622
  Receipt Date: 20220622
  Transmission Date: 20220721
  Serious: No
  Sender: FDA-Public Use
  Company Number: US-TEVA-2022-US-2040641

PATIENT
  Age: 83 Year
  Sex: Female

DRUGS (5)
  1. NEFAZODONE HYDROCHLORIDE [Suspect]
     Active Substance: NEFAZODONE HYDROCHLORIDE
     Indication: Product used for unknown indication
     Dosage: 300 MILLIGRAM DAILY; 300 MILLIGRAM, DAILY
     Route: 065
     Dates: end: 202103
  2. NEFAZODONE HYDROCHLORIDE [Suspect]
     Active Substance: NEFAZODONE HYDROCHLORIDE
     Dosage: 100 MILLIGRAM DAILY; ^WEANED^ DOWN TO 100 MG AT NIGHT
     Route: 065
  3. NEFAZODONE HYDROCHLORIDE [Suspect]
     Active Substance: NEFAZODONE HYDROCHLORIDE
     Dosage: 100 MILLIGRAM DAILY; 100 MILLIGRAM AT NIGHT
     Route: 065
     Dates: start: 20220516
  4. ALPRAZOLAM [Concomitant]
     Active Substance: ALPRAZOLAM
     Indication: Anxiety
     Dosage: .5 MILLIGRAM DAILY;
  5. ALPRAZOLAM [Concomitant]
     Active Substance: ALPRAZOLAM

REACTIONS (3)
  - Adverse event [Not Recovered/Not Resolved]
  - Insomnia [Recovering/Resolving]
  - Product availability issue [Unknown]
